FAERS Safety Report 4820884-2 (Version None)
Quarter: 2005Q4

REPORT INFORMATION
  Report Type: 
  Country: None (occurrence: None)
  Receive Date: 20051103
  Receipt Date: 20051019
  Transmission Date: 20060501
  Serious: Yes (Death)
  Sender: FDA-Public Use
  Company Number: L05-USA-03935-51

PATIENT
  Age: 62 Year

DRUGS (3)
  1. ISOSORBIDE DINITRATE [Suspect]
  2. GABAPENTIN [Suspect]
  3. ETHANOL [Suspect]

REACTIONS (3)
  - BLOOD ALCOHOL INCREASED [None]
  - COMPLETED SUICIDE [None]
  - MULTIPLE DRUG OVERDOSE INTENTIONAL [None]
